FAERS Safety Report 6708014-3 (Version None)
Quarter: 2010Q2

REPORT INFORMATION
  Report Type: 
  Country: None (occurrence: None)
  Receive Date: 20100503
  Receipt Date: 20080818
  Transmission Date: 20101027
  Serious: Yes (Other)
  Sender: FDA-Public Use
  Company Number: US-BAYER-200840319NA

PATIENT
  Age: 23 Year
  Sex: Female

DRUGS (2)
  1. BETASERON [Suspect]
     Indication: MULTIPLE SCLEROSIS
     Dosage: TOTAL DAILY DOSE: 8 MIU
     Route: 058
     Dates: start: 20080311, end: 20080723
  2. IBUPROFEN [Concomitant]
     Indication: PREMEDICATION

REACTIONS (6)
  - FATIGUE [None]
  - MEMORY IMPAIRMENT [None]
  - MOOD SWINGS [None]
  - PAIN [None]
  - PARANOIA [None]
  - TACHYPHRENIA [None]
